FAERS Safety Report 6579323-6 (Version None)
Quarter: 2010Q1

REPORT INFORMATION
  Report Type: 
  Country: None (occurrence: None)
  Receive Date: 20100209
  Receipt Date: 20100209
  Transmission Date: 20100710
  Serious: Yes (Disabling)
  Sender: FDA-Public Use
  Company Number: None

PATIENT
  Age: 36 Year
  Sex: Female
  Weight: 79.3795 kg

DRUGS (1)
  1. ZIACAM NASAL SWABS UNSURE UNSURE [Suspect]
     Indication: NASOPHARYNGITIS

REACTIONS (1)
  - ANOSMIA [None]
